FAERS Safety Report 7639189-X (Version None)
Quarter: 2011Q3

REPORT INFORMATION
  Report Type: 
  Country: None (occurrence: None)
  Receive Date: 20110721
  Receipt Date: 20110708
  Transmission Date: 20111222
  Serious: Yes (Other)
  Sender: FDA-Public Use
  Company Number: ENT 2011-0104

PATIENT
  Age: 57 Year
  Sex: Male

DRUGS (3)
  1. ENTACAPONE [Suspect]
     Indication: PARKINSON'S DISEASE
     Route: 065
  2. LEVODOPA (LEVODOPA) [Suspect]
     Indication: PARKINSON'S DISEASE
     Dosage: MORE THAN 2500 MG/ DAY
  3. AMANTADINE HCL [Suspect]
     Indication: PARKINSON'S DISEASE

REACTIONS (4)
  - ABNORMAL BEHAVIOUR [None]
  - OBSESSIVE THOUGHTS [None]
  - HYPERSEXUALITY [None]
  - GAMBLING [None]
